FAERS Safety Report 14270818 (Version 2)
Quarter: 2018Q2

REPORT INFORMATION
  Report Type: Spontaneous
  Country: FI (occurrence: FI)
  Receive Date: 20171211
  Receipt Date: 20180628
  Transmission Date: 20180711
  Serious: Yes (Other)
  Sender: FDA-Public Use
  Company Number: FI-OTSUKA-2017_014226

PATIENT
  Age: 13 Year
  Sex: Female

DRUGS (3)
  1. MELATONIN [Concomitant]
     Active Substance: MELATONIN
     Indication: SLEEP DISORDER
     Dosage: 1 MG, DAILY
     Route: 065
     Dates: start: 20170119
  2. ABILIFY [Suspect]
     Active Substance: ARIPIPRAZOLE
     Indication: MOOD ALTERED
     Dosage: 7.5 MG X 1, DAILY
     Route: 048
     Dates: start: 20170403, end: 20170601
  3. ABILIFY [Suspect]
     Active Substance: ARIPIPRAZOLE
     Indication: PRODUCT USED FOR UNKNOWN INDICATION
     Dosage: 3.75 MG X 1, UNK
     Route: 048
     Dates: start: 20170601, end: 20170604

REACTIONS (11)
  - Drug administered to patient of inappropriate age [Unknown]
  - Hallucination [Unknown]
  - Bradykinesia [Unknown]
  - Product use in unapproved indication [Unknown]
  - Gaze palsy [Unknown]
  - Gait disturbance [Unknown]
  - Extrapyramidal disorder [Unknown]
  - Muscle rigidity [Unknown]
  - Tremor [Unknown]
  - Drug prescribing error [Unknown]
  - Muscle twitching [Unknown]

NARRATIVE: CASE EVENT DATE: 20170403
